FAERS Safety Report 6996977-0 (Version None)
Quarter: 2010Q3

REPORT INFORMATION
  Report Type: 
  Country: None (occurrence: None)
  Receive Date: 20100918
  Receipt Date: 20090908
  Transmission Date: 20110219
  Serious: No
  Sender: FDA-Public Use
  Company Number: US-WYE-H10574009

PATIENT
  Sex: Female
  Weight: 79.45 kg

DRUGS (4)
  1. PRISTIQ [Suspect]
     Route: 048
     Dates: start: 20090429, end: 20090430
  2. HYDROCHLOROTHIAZIDE [Concomitant]
  3. LISINOPRIL [Concomitant]
  4. ZOLPIDEM [Concomitant]

REACTIONS (2)
  - CONDITION AGGRAVATED [None]
  - HYPERTENSION [None]
